FAERS Safety Report 17033249 (Version 1)
Quarter: 2019Q4

REPORT INFORMATION
  Report Type: Spontaneous
  Country: US (occurrence: US)
  Receive Date: 20191114
  Receipt Date: 20191114
  Transmission Date: 20200122
  Serious: No
  Sender: FDA-Public Use
  Company Number: US-SA-2019SA309721

PATIENT
  Sex: Male

DRUGS (2)
  1. DUPIXENT [Suspect]
     Active Substance: DUPILUMAB
     Indication: DERMATITIS ALLERGIC
     Dosage: 300 MG, QOW
     Route: 058
     Dates: start: 20190627
  2. DEXMETHYLPHENIDATE [Concomitant]
     Active Substance: DEXMETHYLPHENIDATE HYDROCHLORIDE

REACTIONS (4)
  - Sleep disorder [Not Recovered/Not Resolved]
  - Rash [Not Recovered/Not Resolved]
  - Eczema [Not Recovered/Not Resolved]
  - Therapeutic response shortened [Not Recovered/Not Resolved]
